FAERS Safety Report 11427517 (Version 1)
Quarter: 2015Q3

REPORT INFORMATION
  Report Type: Spontaneous
  Country: US (occurrence: US)
  Receive Date: 20150827
  Receipt Date: 20150827
  Transmission Date: 20151125
  Serious: No
  Sender: FDA-Public Use
  Company Number: US-SA-2015SA043033

PATIENT
  Age: 52 Year
  Sex: Male
  Weight: 65.77 kg

DRUGS (1)
  1. FABRAZYME [Suspect]
     Active Substance: AGALSIDASE BETA
     Indication: FABRY^S DISEASE
     Route: 041
     Dates: start: 2007

REACTIONS (3)
  - Peripheral swelling [Unknown]
  - Device occlusion [Unknown]
  - Infection [Unknown]

NARRATIVE: CASE EVENT DATE: 201503
